FAERS Safety Report 21239215 (Version 1)
Quarter: 2022Q3

REPORT INFORMATION
  Report Type: Spontaneous
  Country: JP (occurrence: JP)
  Receive Date: 20220822
  Receipt Date: 20220822
  Transmission Date: 20221027
  Serious: Yes (Death, Other)
  Sender: FDA-Public Use
  Company Number: JP-OTSUKA-2022_041604

PATIENT
  Age: 96 Year
  Sex: Male

DRUGS (2)
  1. TOLVAPTAN [Suspect]
     Active Substance: TOLVAPTAN
     Indication: Cardiac failure chronic
     Dosage: 8 MG/DAY
     Route: 041
  2. TOLVAPTAN [Suspect]
     Active Substance: TOLVAPTAN
     Indication: Pericardial effusion

REACTIONS (1)
  - Cardiac failure chronic [Fatal]
